FAERS Safety Report 9431543 (Version 2)
Quarter: 2015Q1

REPORT INFORMATION
  Report Type: Spontaneous
  Country: US (occurrence: US)
  Receive Date: 20130731
  Receipt Date: 20150221
  Transmission Date: 20150721
  Serious: Yes (Other)
  Sender: FDA-Public Use
  Company Number: US-JNJFOC-20130711774

PATIENT

DRUGS (1)
  1. CHILDRENS BENADRYL ALLERGY CHERRY FLAVORED [Suspect]
     Active Substance: DIPHENHYDRAMINE HYDROCHLORIDE
     Indication: ARTHROPOD BITE
     Route: 048

REACTIONS (5)
  - Malaise [Unknown]
  - Overdose [Unknown]
  - Dizziness [Unknown]
  - Product use issue [Unknown]
  - Gait disturbance [Unknown]
